FAERS Safety Report 16635539 (Version 1)
Quarter: 2019Q3

REPORT INFORMATION
  Report Type: Spontaneous
  Country: GB (occurrence: GB)
  Receive Date: 20190726
  Receipt Date: 20190726
  Transmission Date: 20191004
  Serious: Yes (Hospitalization)
  Sender: FDA-Public Use
  Company Number: GB-TEVA-2019-GB-1083216

PATIENT
  Age: 71 Year
  Sex: Male

DRUGS (8)
  1. PHYTOMENADIONE [Concomitant]
     Active Substance: PHYTONADIONE
  2. AMOXICILLIN. [Concomitant]
     Active Substance: AMOXICILLIN
  3. BISOPROLOL [Concomitant]
     Active Substance: BISOPROLOL
  4. METRONIDAZOLE. [Concomitant]
     Active Substance: METRONIDAZOLE
  5. OMEPRAZOLE. [Concomitant]
     Active Substance: OMEPRAZOLE
  6. LEVOTHYROXINE. [Concomitant]
     Active Substance: LEVOTHYROXINE
  7. WARFARIN [Suspect]
     Active Substance: WARFARIN
     Indication: ATRIAL FIBRILLATION
     Dosage: AS PER INR IN ACCORDING WITH ANTICOAGULANT CLINIC
     Route: 048
     Dates: start: 20190522, end: 20190526
  8. OCTAPLEX [Concomitant]
     Active Substance: COAGULATION FACTOR IX HUMAN\COAGULATION FACTOR VII HUMAN\COAGULATION FACTOR X HUMAN\PROTEIN C\PROTEIN S HUMAN\PROTHROMBIN

REACTIONS (6)
  - Diarrhoea [Unknown]
  - Haematemesis [Unknown]
  - Vomiting [Unknown]
  - Syncope [Unknown]
  - Acute kidney injury [Unknown]
  - Duodenal ulcer haemorrhage [Recovered/Resolved]

NARRATIVE: CASE EVENT DATE: 20190526
